FAERS Safety Report 13342810 (Version 2)
Quarter: 2017Q2

REPORT INFORMATION
  Report Type: Spontaneous
  Country: US (occurrence: US)
  Receive Date: 20170316
  Receipt Date: 20170426
  Transmission Date: 20170830
  Serious: No
  Sender: FDA-Public Use
  Company Number: US-SHIRE-US201705425

PATIENT
  Sex: Female
  Weight: 68.27 kg

DRUGS (2)
  1. XIIDRA [Suspect]
     Active Substance: LIFITEGRAST
     Indication: DRY EYE
     Dosage: 1 GTT IN BOTH EYES, 2X/DAY:BID
     Route: 047
     Dates: start: 201701
  2. LOSARTAN. [Concomitant]
     Active Substance: LOSARTAN
     Indication: HYPERTENSION
     Dosage: 50 MG, 1X/DAY:QD
     Route: 048

REACTIONS (5)
  - Vision blurred [Not Recovered/Not Resolved]
  - Instillation site lacrimation [Not Recovered/Not Resolved]
  - Product quality issue [Unknown]
  - Instillation site discharge [Not Recovered/Not Resolved]
  - Eyelid disorder [Unknown]

NARRATIVE: CASE EVENT DATE: 2017
